FAERS Safety Report 7527619-3 (Version None)
Quarter: 2011Q2

REPORT INFORMATION
  Report Type: 
  Country: None (occurrence: None)
  Receive Date: 20110607
  Receipt Date: 20110126
  Transmission Date: 20111010
  Serious: Yes (Hospitalization, Other)
  Sender: FDA-Public Use
  Company Number: US-BAYER-201014745NA

PATIENT
  Age: 40 Year
  Sex: Female
  Weight: 107 kg

DRUGS (11)
  1. YAZ [Suspect]
     Indication: ENDOMETRIOSIS
  2. VITAMIN D [Concomitant]
     Route: 065
  3. YAZ [Suspect]
     Indication: POLYMENORRHOEA
  4. CELEXA [Concomitant]
     Route: 065
  5. COUMADIN [Concomitant]
     Route: 065
  6. PANADEINE CO [Concomitant]
     Route: 065
  7. NAPROXEN (ALEVE) [Concomitant]
     Route: 065
  8. ADVIL LIQUI-GELS [Concomitant]
     Route: 065
  9. ASCORBIC ACID [Concomitant]
     Route: 065
  10. YAZ [Suspect]
     Indication: MENORRHAGIA
     Dosage: AS USED DOSE: UNK
     Route: 048
     Dates: start: 20070201, end: 20091101
  11. TYLENOL W/ CODEINE NO. 3 [Concomitant]
     Route: 065

REACTIONS (7)
  - DYSPNOEA [None]
  - PAIN IN EXTREMITY [None]
  - PULMONARY EMBOLISM [None]
  - PELVIC VENOUS THROMBOSIS [None]
  - WOUND INFECTION STAPHYLOCOCCAL [None]
  - DEEP VEIN THROMBOSIS [None]
  - CHOLELITHIASIS [None]
